FAERS Safety Report 19011664 (Version 1)
Quarter: 2021Q1

REPORT INFORMATION
  Report Type: Spontaneous
  Country: US (occurrence: US)
  Receive Date: 20210315
  Receipt Date: 20210315
  Transmission Date: 20210420
  Serious: No
  Sender: FDA-Public Use
  Company Number: None

PATIENT
  Age: 55 Year
  Sex: Female

DRUGS (1)
  1. VERZENIO [Suspect]
     Active Substance: ABEMACICLIB
     Route: 048
     Dates: start: 20210115

REACTIONS (4)
  - Alopecia [None]
  - Liver function test abnormal [None]
  - Therapy interrupted [None]
  - Renal function test abnormal [None]

NARRATIVE: CASE EVENT DATE: 20210210
